FAERS Safety Report 5456957-3 (Version None)
Quarter: 2007Q3

REPORT INFORMATION
  Report Type: 
  Country: None (occurrence: None)
  Receive Date: 20070918
  Receipt Date: 20070222
  Transmission Date: 20080115
  Serious: Yes (Other)
  Sender: FDA-Public Use
  Company Number: US-ASTRAZENECA-2006UW27094

PATIENT
  Age: 35 Year
  Sex: Female
  Weight: 77.3 kg

DRUGS (4)
  1. SEROQUEL [Suspect]
     Indication: BIPOLAR DISORDER
     Route: 048
     Dates: start: 20061206, end: 20061208
  2. VITAMIN B-12 [Concomitant]
  3. SYNTHROID [Concomitant]
  4. ANTIHYPERTENSIVE [Concomitant]

REACTIONS (4)
  - AKATHISIA [None]
  - FEELING JITTERY [None]
  - NERVOUSNESS [None]
  - RESTLESSNESS [None]
